FAERS Safety Report 9197767 (Version 1)
Quarter: 2013Q1

REPORT INFORMATION
  Report Type: Spontaneous
  Country: US (occurrence: US)
  Receive Date: 20130328
  Receipt Date: 20130328
  Transmission Date: 20140127
  Serious: No
  Sender: FDA-Public Use
  Company Number: US-PFIZER INC-2013097032

PATIENT
  Sex: Female

DRUGS (2)
  1. AZULFIDINE [Suspect]
     Dosage: 2 G DAILY
     Dates: start: 201301
  2. ALTACE [Suspect]
     Dosage: 5 MG DAILY
     Dates: start: 201212

REACTIONS (4)
  - Cough [Unknown]
  - Oropharyngeal pain [Unknown]
  - Confusional state [Unknown]
  - Trigeminal neuralgia [Unknown]
